FAERS Safety Report 15867885 (Version 8)
Quarter: 2020Q3

REPORT INFORMATION
  Report Type: Report from Study
  Country: AR (occurrence: AR)
  Receive Date: 20190125
  Receipt Date: 20200824
  Transmission Date: 20201102
  Serious: Yes (Hospitalization, Other)
  Sender: FDA-Public Use
  Company Number: AR-ACTELION-A-CH2019-185338

PATIENT
  Age: 57 Year
  Sex: Male
  Weight: 103 kg

DRUGS (1)
  1. VELETRI [Suspect]
     Active Substance: EPOPROSTENOL
     Indication: PULMONARY ARTERIAL HYPERTENSION
     Dosage: 1 NG/KG, PER MIN
     Route: 042
     Dates: start: 20180101

REACTIONS (11)
  - Catheter management [Unknown]
  - Cardiac failure [Unknown]
  - Abdominal pain upper [Unknown]
  - Skin infection [Unknown]
  - Catheter placement [Unknown]
  - Hypotension [Recovering/Resolving]
  - Catheter site irritation [Recovering/Resolving]
  - Fluid retention [Recovered/Resolved]
  - Weight increased [Recovered/Resolved]
  - Implantable defibrillator insertion [Unknown]
  - Catheter site infection [Unknown]

NARRATIVE: CASE EVENT DATE: 2020
